FAERS Safety Report 5883511-1 (Version None)
Quarter: 2008Q3

REPORT INFORMATION
  Report Type: 
  Country: None (occurrence: None)
  Receive Date: 20080915
  Receipt Date: 20080904
  Transmission Date: 20090109
  Serious: Yes (Other)
  Sender: FDA-Public Use
  Company Number: PHHY2008CA13767

PATIENT
  Sex: Male

DRUGS (10)
  1. RITALIN-SR [Suspect]
     Indication: HYPERHIDROSIS
     Dosage: 20 MG, BID
     Route: 048
     Dates: start: 20080312
  2. ASAPHEN [Concomitant]
     Dosage: 80 MG/DAY
  3. METFORMIN HCL [Concomitant]
     Dosage: 500 MG, BID
  4. SYNTHROID [Concomitant]
     Dosage: 0.15 MG, AM
  5. BISOPROLOL FUMARATE [Concomitant]
     Dosage: 5 MG, 1.5 CO DAILY
  6. ATACAND [Concomitant]
     Dosage: 16 MG/DAY
  7. PLAVIX [Concomitant]
     Dosage: 75 MG/DAY
  8. LIPITOR [Concomitant]
     Dosage: 40 MG/DAY
  9. ALBUTEROL SPIROS [Concomitant]
     Dosage: UNK
  10. NITROLINGUAL [Concomitant]
     Dosage: UNK

REACTIONS (1)
  - MEDICATION RESIDUE [None]
